FAERS Safety Report 5587968-5 (Version None)
Quarter: 2008Q1

REPORT INFORMATION
  Report Type: 
  Country: None (occurrence: None)
  Receive Date: 20080111
  Receipt Date: 20080108
  Transmission Date: 20080703
  Serious: Yes (Other)
  Sender: FDA-Public Use
  Company Number: CA-JNJFOC-20070904665

PATIENT
  Sex: Male
  Weight: 74 kg

DRUGS (7)
  1. REMICADE [Suspect]
     Route: 042
  2. REMICADE [Suspect]
     Route: 042
  3. REMICADE [Suspect]
     Route: 042
  4. REMICADE [Suspect]
     Indication: CROHN'S DISEASE
     Route: 042
  5. BENADRYL [Concomitant]
     Indication: PREMEDICATION
     Route: 042
  6. SOLU-CORTEF [Concomitant]
     Indication: PREMEDICATION
     Route: 042
  7. GRAVOL TAB [Concomitant]
     Indication: PREMEDICATION
     Route: 042

REACTIONS (5)
  - ADVERSE EVENT [None]
  - DYSPNOEA [None]
  - HYPERAEMIA [None]
  - NAUSEA [None]
  - VOMITING [None]
